APPROVED DRUG PRODUCT: MELOXICAM
Active Ingredient: MELOXICAM
Strength: 7.5MG
Dosage Form/Route: TABLET;ORAL
Application: A077931 | Product #001 | TE Code: AB
Applicant: RISING PHARMA HOLDINGS INC
Approved: Jul 25, 2006 | RLD: No | RS: No | Type: RX